FAERS Safety Report 17628955 (Version 8)
Quarter: 2020Q4

REPORT INFORMATION
  Report Type: Report from Study
  Country: JP (occurrence: JP)
  Receive Date: 20200406
  Receipt Date: 20201225
  Transmission Date: 20210113
  Serious: Yes (Other)
  Sender: FDA-Public Use
  Company Number: JP-ROCHE-2555525

PATIENT
  Age: 62 Year
  Sex: Female
  Weight: 58 kg

DRUGS (14)
  1. OXALIPLATIN. [Concomitant]
     Active Substance: OXALIPLATIN
     Indication: RECTAL CANCER
     Dosage: DAY1
     Route: 041
     Dates: start: 20200106
  2. DEXAMETHASONE. [Concomitant]
     Active Substance: DEXAMETHASONE
     Dosage: 30 MINUTES, DAY1
     Route: 042
     Dates: start: 20200106, end: 20200106
  3. APREPITANT. [Concomitant]
     Active Substance: APREPITANT
     Dosage: DAY1
     Route: 048
     Dates: start: 20200106, end: 20200106
  4. BEVACIZUMAB. [Suspect]
     Active Substance: BEVACIZUMAB
     Indication: RECTAL CANCER
     Route: 041
     Dates: start: 20200106, end: 20200217
  5. IRINOTECAN HYDROCHLORIDE. [Concomitant]
     Active Substance: IRINOTECAN HYDROCHLORIDE
     Indication: RECTAL CANCER
     Dosage: DAY1
     Route: 041
     Dates: start: 20200106
  6. IRINOTECAN HYDROCHLORIDE. [Concomitant]
     Active Substance: IRINOTECAN HYDROCHLORIDE
     Dosage: DAY1
     Route: 041
     Dates: start: 20200217
  7. PALONOSETRON HYDROCHLORIDE. [Concomitant]
     Active Substance: PALONOSETRON HYDROCHLORIDE
     Dosage: 30 MINUTES, DAY1
     Route: 042
     Dates: start: 20200106
  8. APREPITANT. [Concomitant]
     Active Substance: APREPITANT
     Dosage: DAY2-3
     Route: 048
     Dates: start: 20200107, end: 20200108
  9. CAPECITABINE. [Suspect]
     Active Substance: CAPECITABINE
     Route: 048
     Dates: start: 20180402
  10. LOPERAMIDE HYDROCHLORIDE. [Concomitant]
     Active Substance: LOPERAMIDE HYDROCHLORIDE
     Route: 048
  11. BEVACIZUMAB. [Suspect]
     Active Substance: BEVACIZUMAB
     Route: 041
     Dates: start: 20170501
  12. CAPECITABINE. [Suspect]
     Active Substance: CAPECITABINE
     Indication: RECTAL CANCER
     Route: 048
     Dates: start: 20200106, end: 2020
  13. CAPECITABINE. [Suspect]
     Active Substance: CAPECITABINE
     Route: 048
     Dates: start: 20200217
  14. DEXAMETHASONE. [Concomitant]
     Active Substance: DEXAMETHASONE
     Dosage: DAY2-4
     Route: 048
     Dates: start: 20200107

REACTIONS (4)
  - Embolism venous [Unknown]
  - Febrile neutropenia [Recovered/Resolved]
  - Embolism arterial [Recovered/Resolved]
  - Gastric varices [Unknown]

NARRATIVE: CASE EVENT DATE: 20200217
